FAERS Safety Report 4901839-6 (Version None)
Quarter: 2006Q1

REPORT INFORMATION
  Report Type: 
  Country: None (occurrence: None)
  Receive Date: 20060202
  Receipt Date: 20060202
  Transmission Date: 20060701
  Serious: Yes (Other)
  Sender: FDA-Public Use
  Company Number: None

PATIENT
  Age: 60 Year
  Sex: Female
  Weight: 59.648 kg

DRUGS (2)
  1. ULTRAM [Suspect]
     Indication: COMPLEX REGIONAL PAIN SYNDROME
     Dosage: 6 TABS TID PO
     Route: 048
  2. ULTRAM [Suspect]
     Indication: PAIN
     Dosage: 6 TABS TID PO
     Route: 048

REACTIONS (2)
  - HEADACHE [None]
  - THERAPEUTIC RESPONSE UNEXPECTED WITH DRUG SUBSTITUTION [None]
